FAERS Safety Report 10026298 (Version 5)
Quarter: 2015Q1

REPORT INFORMATION
  Report Type: Report from Study
  Country: US (occurrence: US)
  Receive Date: 20140320
  Receipt Date: 20150103
  Transmission Date: 20150720
  Serious: Yes (Hospitalization)
  Sender: FDA-Public Use
  Company Number: US-BRISTOL-MYERS SQUIBB COMPANY-20467619

PATIENT
  Age: 69 Year
  Sex: Female
  Weight: 100.7 kg

DRUGS (10)
  1. METOPROLOL [Concomitant]
     Active Substance: METOPROLOL
     Dosage: UNKNOWN DATE TO ONGOING
  2. ATORVASTATIN [Concomitant]
     Active Substance: ATORVASTATIN
     Dosage: UNKNOWN DATE TO ONGOING
  3. IPILIMUMAB [Suspect]
     Active Substance: IPILIMUMAB
     Indication: METASTATIC MALIGNANT MELANOMA
     Dosage: 3 MG/KG, QD
     Route: 042
     Dates: start: 20131219, end: 20140220
  4. TRIAMCINOLON E [Concomitant]
     Dosage: ONGOING
     Dates: start: 20140109
  5. COLACE [Concomitant]
     Active Substance: DOCUSATE SODIUM
     Dosage: ONGOING
     Dates: start: 20140130
  6. CALTRATE [Concomitant]
     Active Substance: CALCIUM CARBONATE
     Dosage: UNKNOWN DATE TO ONGOING
  7. SYNTHROID [Concomitant]
     Active Substance: LEVOTHYROXINE SODIUM
     Dosage: UNKNOWN DATE TO ONGOING
  8. NIVOLUMAB [Suspect]
     Active Substance: NIVOLUMAB
     Indication: METASTATIC MALIGNANT MELANOMA
     Dosage: 1 MG/KG, QD
     Route: 042
     Dates: start: 20131219, end: 20140220
  9. XARELTO [Concomitant]
     Active Substance: RIVAROXABAN
     Dosage: UNKNOWN DATE TO ONGOING
  10. SENNA [Concomitant]
     Active Substance: SENNA LEAF\SENNOSIDES\SENNOSIDES A AND B
     Dosage: ONGOING
     Dates: start: 20140130

REACTIONS (1)
  - Pyrexia [Recovered/Resolved]

NARRATIVE: CASE EVENT DATE: 20140307
